FAERS Safety Report 13706091 (Version 4)
Quarter: 2017Q3

REPORT INFORMATION
  Report Type: Spontaneous
  Country: DE (occurrence: DE)
  Receive Date: 20170630
  Receipt Date: 20170825
  Transmission Date: 20171127
  Serious: Yes (Hospitalization, Other)
  Sender: FDA-Public Use
  Company Number: DE-PFIZER INC-2017272560

PATIENT
  Age: 64 Year
  Sex: Male
  Weight: 102 kg

DRUGS (13)
  1. FOLSAN [Concomitant]
     Active Substance: FOLIC ACID
     Indication: RHEUMATOID ARTHRITIS
     Dosage: 1 TABLET WEEKLY
     Dates: start: 2006
  2. DEKRISTOL [Concomitant]
     Active Substance: CHOLECALCIFEROL
     Indication: VITAMIN D DEFICIENCY
     Dosage: 1 TABLET WEEKLY
     Dates: start: 2015
  3. DIGITOXIN [Concomitant]
     Active Substance: DIGITOXIN
     Dosage: UNK
  4. FUROSEMID [Concomitant]
     Active Substance: FUROSEMIDE
     Dosage: UNK
  5. XELJANZ [Suspect]
     Active Substance: TOFACITINIB CITRATE
     Indication: RHEUMATOID ARTHRITIS
     Dosage: 5 MG, 2X A DAY
     Route: 048
     Dates: start: 20170529, end: 20170613
  6. XELJANZ [Suspect]
     Active Substance: TOFACITINIB CITRATE
     Indication: POLYARTHRITIS
  7. PRADAXA [Concomitant]
     Active Substance: DABIGATRAN ETEXILATE MESYLATE
     Dosage: UNK
  8. RAMIPRIL. [Concomitant]
     Active Substance: RAMIPRIL
     Dosage: UNK
  9. FLUVASTATIN [Concomitant]
     Active Substance: FLUVASTATIN SODIUM
     Dosage: UNK
  10. TILIDIN [Concomitant]
     Active Substance: NALOXONE HYDROCHLORIDE\TILIDINE HYDROCHLORIDE
     Indication: ANALGESIC THERAPY
     Dosage: 1 TABLET DAILY
  11. PANTOPRAZOL [Concomitant]
     Active Substance: PANTOPRAZOLE SODIUM
     Indication: DYSPEPSIA
     Dosage: 1 TABLET DAILY
     Dates: start: 2006
  12. METOHEXAL [Concomitant]
     Active Substance: METOPROLOL SUCCINATE
     Dosage: UNK
  13. MTX [Concomitant]
     Active Substance: METHOTREXATE SODIUM
     Indication: RHEUMATOID ARTHRITIS
     Dosage: 1 TABLET WEEKLY
     Dates: start: 2006

REACTIONS (3)
  - Cluster headache [Unknown]
  - Herpes zoster meningoencephalitis [Unknown]
  - Ophthalmic herpes zoster [Unknown]

NARRATIVE: CASE EVENT DATE: 20170614
